FAERS Safety Report 10641354 (Version 1)
Quarter: 2014Q4

REPORT INFORMATION
  Report Type: Spontaneous
  Country: None (occurrence: None)
  Receive Date: 20141208
  Receipt Date: 20141208
  Transmission Date: 20150529
  Serious: Yes (Hospitalization)
  Sender: FDA-Public Use
  Company Number: 2014120026

PATIENT
  Age: 41 Year
  Sex: Male

DRUGS (7)
  1. CITODON( CODEINE PHOSPHATE\, PARACETAMOL) [Concomitant]
  2. GAVISCON [Concomitant]
     Active Substance: ALUMINUM HYDROXIDE\MAGNESIUM CARBONATE
  3. NIASIN (OXYMETAZOLINE HYDROCHLORIDE) [Concomitant]
  4. PULMICORT TURBUHALER [Concomitant]
     Active Substance: BUDESONIDE
  5. DYMISTA [Suspect]
     Active Substance: AZELASTINE HYDROCHLORIDE\FLUTICASONE PROPIONATE
     Indication: RHINITIS ALLERGIC
     Dosage: 1 HUB FOR EVERY NOSTRIL, NASAL
     Dates: start: 201401, end: 20141122
  6. RHINOCORT (BECLOMETASONE DIPROPIONATE) [Concomitant]
     Active Substance: BECLOMETHASONE DIPROPIONATE
  7. OMEPRAZOLE (OMEPRAZOLE SODIUM) [Concomitant]

REACTIONS (25)
  - Chest discomfort [None]
  - Visual impairment [None]
  - Dyspnoea [None]
  - Extrasystoles [None]
  - Nasal congestion [None]
  - Secretion discharge [None]
  - Dysphonia [None]
  - Pruritus [None]
  - Body temperature decreased [None]
  - Pain [None]
  - Respiratory disorder [None]
  - Nausea [None]
  - Scab [None]
  - Rhinalgia [None]
  - Heart rate increased [None]
  - Dyspnoea exertional [None]
  - Erythema [None]
  - Cough [None]
  - Decreased appetite [None]
  - Throat tightness [None]
  - Ear discomfort [None]
  - Sneezing [None]
  - Epistaxis [None]
  - Malaise [None]
  - Oral pain [None]

NARRATIVE: CASE EVENT DATE: 201401
